FAERS Safety Report 15109286 (Version 1)
Quarter: 2018Q2

REPORT INFORMATION
  Report Type: Spontaneous
  Country: US (occurrence: US)
  Receive Date: 20180611
  Receipt Date: 20180611
  Transmission Date: 20180711
  Serious: Yes (Hospitalization)
  Sender: FDA-Public Use
  Company Number: None

PATIENT
  Age: 65 Year
  Sex: Female
  Weight: 61.69 kg

DRUGS (28)
  1. FUROSEMIDE. [Concomitant]
     Active Substance: FUROSEMIDE
  2. FLUTICASONE. [Concomitant]
     Active Substance: FLUTICASONE
  3. CETIRIZINE [Concomitant]
     Active Substance: CETIRIZINE HYDROCHLORIDE
  4. ESTRADIOL. [Concomitant]
     Active Substance: ESTRADIOL
  5. NOVOLOG [Concomitant]
     Active Substance: INSULIN ASPART
  6. TRAMADOL. [Concomitant]
     Active Substance: TRAMADOL
  7. TRAZODONE [Concomitant]
     Active Substance: TRAZODONE HYDROCHLORIDE
  8. AMLODIPINE [Concomitant]
     Active Substance: AMLODIPINE BESYLATE
  9. BENZONATATE. [Concomitant]
     Active Substance: BENZONATATE
  10. PRAVASTATIN. [Concomitant]
     Active Substance: PRAVASTATIN
  11. PRAMIPEXOLE. [Concomitant]
     Active Substance: PRAMIPEXOLE
  12. ALBUTEROL. [Concomitant]
     Active Substance: ALBUTEROL
  13. FOLIC ACID. [Concomitant]
     Active Substance: FOLIC ACID
  14. PANTOPRAZOLE [Concomitant]
     Active Substance: PANTOPRAZOLE
  15. FERROUS SULFATE. [Concomitant]
     Active Substance: FERROUS SULFATE
  16. LOSARTAN. [Concomitant]
     Active Substance: LOSARTAN
  17. METFORMIN [Concomitant]
     Active Substance: METFORMIN HYDROCHLORIDE
  18. VITAMIN D [Concomitant]
     Active Substance: CHOLECALCIFEROL
  19. IPRATROPIUM [Concomitant]
     Active Substance: IPRATROPIUM
  20. TACROLIMUS. [Concomitant]
     Active Substance: TACROLIMUS
  21. PERMETHRIN. [Concomitant]
     Active Substance: PERMETHRIN
  22. INSULIN LISPRO [Concomitant]
     Active Substance: INSULIN LISPRO
  23. OXYGEN. [Concomitant]
     Active Substance: OXYGEN
  24. MYCOPHENOLATE MOFETIL. [Concomitant]
     Active Substance: MYCOPHENOLATE MOFETIL
  25. TYLENOL [Concomitant]
     Active Substance: ACETAMINOPHEN
  26. HARVONI [Suspect]
     Active Substance: LEDIPASVIR\SOFOSBUVIR
     Indication: HEPATITIS C
     Route: 048
     Dates: start: 20170817, end: 20171109
  27. PREDNISONE. [Concomitant]
     Active Substance: PREDNISONE
  28. INSULIN GLARGINE [Concomitant]
     Active Substance: INSULIN GLARGINE

REACTIONS (4)
  - Malaise [None]
  - Abdominal pain [None]
  - Pneumonia [None]
  - Dyspnoea [None]
